FAERS Safety Report 8047634-3 (Version None)
Quarter: 2012Q1

REPORT INFORMATION
  Report Type: 
  Country: None (occurrence: None)
  Receive Date: 20120116
  Receipt Date: 20120107
  Transmission Date: 20120608
  Serious: Yes (Other)
  Sender: FDA-Public Use
  Company Number: JP-GLAXOSMITHKLINE-B0774825A

PATIENT
  Sex: Female

DRUGS (6)
  1. VESICARE [Concomitant]
     Route: 048
  2. MOBIC [Concomitant]
     Route: 048
  3. PAXIL [Suspect]
     Indication: PRODUCT USED FOR UNKNOWN INDICATION
     Dosage: 10MG PER DAY
     Route: 048
     Dates: start: 20090401
  4. LAXOBERON [Concomitant]
     Route: 048
  5. FERROUS CITRATE [Concomitant]
     Route: 048
  6. MUCOSTA [Concomitant]
     Route: 048

REACTIONS (3)
  - SOMNOLENCE [None]
  - LOSS OF CONSCIOUSNESS [None]
  - DEPRESSED LEVEL OF CONSCIOUSNESS [None]
